FAERS Safety Report 7042121-3 (Version None)
Quarter: 2010Q4

REPORT INFORMATION
  Report Type: 
  Country: None (occurrence: None)
  Receive Date: 20101013
  Receipt Date: 20100105
  Transmission Date: 20110411
  Serious: No
  Sender: FDA-Public Use
  Company Number: US-ASTRAZENECA-2010SE00311

PATIENT
  Age: 77 Year
  Sex: Female
  Weight: 61.7 kg

DRUGS (6)
  1. SYMBICORT [Suspect]
     Dosage: 160/4.5, 2 PUFFS TWO TIMES A DAY
     Route: 055
  2. LISINOPRIL [Concomitant]
  3. HYDROCHLOROTHIAZIDE [Concomitant]
  4. ZANTAC [Concomitant]
  5. ZOCOR [Concomitant]
  6. XOPENEX [Concomitant]

REACTIONS (1)
  - WEIGHT INCREASED [None]
